FAERS Safety Report 7990945-8 (Version None)
Quarter: 2011Q4

REPORT INFORMATION
  Report Type: 
  Country: None (occurrence: None)
  Receive Date: 20111219
  Receipt Date: 20111216
  Transmission Date: 20120403
  Serious: Yes (Death)
  Sender: FDA-Public Use
  Company Number: IT-ROCHE-1022617

PATIENT

DRUGS (4)
  1. AVASTIN [Suspect]
     Indication: COLON CANCER
     Route: 042
     Dates: start: 20110608, end: 20110921
  2. FLUOROURACIL [Concomitant]
     Route: 042
     Dates: start: 20110608, end: 20110921
  3. OXALIPLATIN [Concomitant]
     Route: 042
     Dates: start: 20110608, end: 20110921
  4. LEDERFOLIN [Concomitant]
     Route: 042
     Dates: start: 20110608, end: 20110921

REACTIONS (1)
  - ABDOMINAL PAIN [None]
